FAERS Safety Report 6844227-8 (Version None)
Quarter: 2010Q3

REPORT INFORMATION
  Report Type: 
  Country: None (occurrence: None)
  Receive Date: 20100715
  Receipt Date: 20100708
  Transmission Date: 20110219
  Serious: Yes (Death)
  Sender: FDA-Public Use
  Company Number: B0665347A

PATIENT
  Age: 86 Year
  Sex: Male

DRUGS (3)
  1. RANIDIL [Suspect]
     Indication: PRODUCT USED FOR UNKNOWN INDICATION
     Dosage: 6VIAL PER DAY
     Route: 042
     Dates: start: 20040101
  2. LASIX [Concomitant]
     Route: 065
  3. UNKNOWN DRUG [Concomitant]

REACTIONS (2)
  - ACUTE PULMONARY OEDEMA [None]
  - DRUG ADMINISTRATION ERROR [None]
